FAERS Safety Report 19631736 (Version 1)
Quarter: 2021Q3

REPORT INFORMATION
  Report Type: Spontaneous
  Country: US (occurrence: US)
  Receive Date: 20210729
  Receipt Date: 20210729
  Transmission Date: 20211014
  Serious: No
  Sender: FDA-Public Use
  Company Number: US-MYLANLABS-2021M1042500

PATIENT
  Sex: Female
  Weight: 67 kg

DRUGS (1)
  1. FENTANYL TRANSDERMAL SYSTEM [Suspect]
     Active Substance: FENTANYL
     Indication: PAIN
     Dosage: 50 MILLIGRAM, QH (50 MCG/HR FOR EVERY 48 HOURS)
     Route: 062
     Dates: start: 2004, end: 20210708

REACTIONS (1)
  - Drug ineffective [Recovered/Resolved]
